FAERS Safety Report 10277553 (Version 4)
Quarter: 2014Q3

REPORT INFORMATION
  Report Type: Report from Study
  Country: CA (occurrence: CA)
  Receive Date: 20140703
  Receipt Date: 20140909
  Transmission Date: 20150326
  Serious: Yes (Hospitalization, Other)
  Sender: FDA-Public Use
  Company Number: CA-ABBVIE-14P-028-1254217-00

PATIENT
  Age: 91 Year
  Sex: Female

DRUGS (1)
  1. HUMIRA [Suspect]
     Active Substance: ADALIMUMAB
     Indication: CROHN^S DISEASE
     Route: 058
     Dates: start: 20110831

REACTIONS (8)
  - Speech disorder [Recovering/Resolving]
  - Disorientation [Recovering/Resolving]
  - Convulsion [Recovered/Resolved]
  - Aphasia [Recovering/Resolving]
  - Fall [Recovered/Resolved]
  - Convulsion [Not Recovered/Not Resolved]
  - Loss of consciousness [Recovered/Resolved]
  - Head injury [Not Recovered/Not Resolved]

NARRATIVE: CASE EVENT DATE: 20140625
